FAERS Safety Report 13701489 (Version 1)
Quarter: 2017Q2

REPORT INFORMATION
  Report Type: Spontaneous
  Country: US (occurrence: US)
  Receive Date: 20170628
  Receipt Date: 20170628
  Transmission Date: 20170830
  Serious: Yes (Disabling)
  Sender: FDA-Public Use
  Company Number: None

PATIENT
  Age: 10 Year
  Sex: Male
  Weight: 36 kg

DRUGS (1)
  1. MIRALAX [Suspect]
     Active Substance: POLYETHYLENE GLYCOL 3350

REACTIONS (8)
  - Enuresis [None]
  - Abdominal distension [None]
  - Muscle spasms [None]
  - Confusional state [None]
  - Mood swings [None]
  - Suicidal ideation [None]
  - Nightmare [None]
  - Dyspnoea [None]

NARRATIVE: CASE EVENT DATE: 20170605
